FAERS Safety Report 7235938-3 (Version None)
Quarter: 2011Q1

REPORT INFORMATION
  Report Type: 
  Country: None (occurrence: None)
  Receive Date: 20110120
  Receipt Date: 20110104
  Transmission Date: 20110831
  Serious: Yes (Hospitalization)
  Sender: FDA-Public Use
  Company Number: A0860403A

PATIENT
  Age: 37 Year
  Sex: Male

DRUGS (8)
  1. PAROXETINE HYDROCHLORIDE [Suspect]
     Route: 048
  2. PAXIL CR [Suspect]
     Indication: DEPRESSION
     Dosage: 25MG AT NIGHT
     Route: 048
     Dates: start: 20050101, end: 20070514
  3. METOPROLOL [Concomitant]
  4. ASPIRIN [Concomitant]
  5. AUGMENTIN '125' [Suspect]
     Route: 048
     Dates: start: 20070427
  6. LUNESTA [Suspect]
     Route: 048
  7. PAXIL [Suspect]
     Indication: ANXIETY
     Dosage: 20MG AT NIGHT
     Route: 048
     Dates: start: 20070514
  8. PREDNISONE [Suspect]
     Dates: start: 20070427

REACTIONS (5)
  - ROAD TRAFFIC ACCIDENT [None]
  - MYOCARDIAL INFARCTION [None]
  - SUICIDAL IDEATION [None]
  - LOSS OF CONSCIOUSNESS [None]
  - HOMICIDAL IDEATION [None]
